FAERS Safety Report 20239561 (Version 2)
Quarter: 2022Q1

REPORT INFORMATION
  Report Type: Spontaneous
  Country: US (occurrence: US)
  Receive Date: 20211228
  Receipt Date: 20220118
  Transmission Date: 20220423
  Serious: Yes (Other)
  Sender: FDA-Public Use
  Company Number: US-BAYER-2021P000215

PATIENT
  Age: 51 Year
  Sex: Male

DRUGS (3)
  1. KOGENATE FS [Suspect]
     Active Substance: ANTIHEMOPHILIC FACTOR, HUMAN RECOMBINANT
     Dosage: 2300 IU, QOD
     Route: 042
  2. KOGENATE FS [Suspect]
     Active Substance: ANTIHEMOPHILIC FACTOR, HUMAN RECOMBINANT
     Dosage: 4 DF, UNK
     Route: 042
     Dates: start: 202112, end: 202112
  3. KOGENATE FS [Suspect]
     Active Substance: ANTIHEMOPHILIC FACTOR, HUMAN RECOMBINANT
     Dosage: 2300 IU
     Route: 042
     Dates: start: 202201

REACTIONS (5)
  - Haemarthrosis [Recovered/Resolved]
  - Joint effusion [None]
  - Drug ineffective [None]
  - Arthralgia [None]
  - Meniscus injury [None]

NARRATIVE: CASE EVENT DATE: 20211206
